FAERS Safety Report 5037063-9 (Version None)
Quarter: 2006Q2

REPORT INFORMATION
  Report Type: 
  Country: None (occurrence: None)
  Receive Date: 20060622
  Receipt Date: 20060614
  Transmission Date: 20061013
  Serious: Yes (Other)
  Sender: FDA-Public Use
  Company Number: 2006076174

PATIENT
  Age: 81 Year
  Sex: Male

DRUGS (1)
  1. LISTERINE MOUTHWASH ADVANCED ARCTIC MINT (MENTHOL, METHYL SALICYLATE, [Suspect]
     Dosage: ORAL
     Route: 048

REACTIONS (2)
  - APHONIA [None]
  - LARYNGEAL DISORDER [None]
